FAERS Safety Report 9559763 (Version 3)
Quarter: 2014Q1

REPORT INFORMATION
  Report Type: Spontaneous
  Country: US (occurrence: None)
  Receive Date: 20130924
  Receipt Date: 20140109
  Transmission Date: 20141002
  Serious: Yes (Hospitalization)
  Sender: FDA-Public Use
  Company Number: 2013US002512

PATIENT
  Age: 75 Year
  Sex: Male
  Weight: 66 kg

DRUGS (17)
  1. PONATINIB [Suspect]
     Indication: CHRONIC MYELOID LEUKAEMIA
     Route: 048
     Dates: start: 20110126, end: 20130228
  2. CLONAZEPAM (CLONAZEOAM) [Concomitant]
  3. MIRALAX [Concomitant]
  4. MULTIVITAMIN (VITAMIN NOS) [Concomitant]
  5. VICODIN (HYDROCODONE BITARTRATE, PARACETAMOL) [Concomitant]
  6. NEUPOGEN (FILGRASTIM) [Concomitant]
  7. LEVOTHYROXINE (LEVOTHYROXINE SODIUM) [Concomitant]
  8. VALIUM (DIAZEPAM) [Concomitant]
  9. CODEINE (CODEINE) [Concomitant]
  10. IBUPROFEN (IBUPROFEN) [Concomitant]
  11. NAPROSYN (NAPROXEN) [Concomitant]
  12. VIAGRA (SILDENAFIL CITRATE) [Concomitant]
  13. TYLENOL (PARACETAMOL) [Concomitant]
  14. FISH OIL (FISHOIL) [Concomitant]
  15. COLACE (DOCUSATE SODIUM) [Concomitant]
  16. CALCITROL (CALCITRIOL) [Concomitant]
  17. CELEBREX (CELECOXIB) [Concomitant]

REACTIONS (9)
  - Cerebrovascular accident [None]
  - Hypoaesthesia [None]
  - Hypoaesthesia [None]
  - Transient ischaemic attack [None]
  - Lacunar infarction [None]
  - Pain [None]
  - Blood pressure increased [None]
  - Left ventricular hypertrophy [None]
  - Diastolic dysfunction [None]
